FAERS Safety Report 6694475 (Version 6)
Quarter: 2020Q3

REPORT INFORMATION
  Report Type: Report from Study
  Country: US (occurrence: US)
  Receive Date: 20080709
  Receipt Date: 20081031
  Transmission Date: 20201104
  Serious: Yes (Other)
  Sender: FDA-Public Use
  Company Number: US-JNJFOC-20080700718

PATIENT
  Age: 74 Year
  Sex: Female
  Weight: 52 kg

DRUGS (34)
  1. FERROUS SULFATE. [Concomitant]
     Active Substance: FERROUS SULFATE
     Indication: ANAEMIA
     Route: 048
  2. DIASTASE\PANCREATIN\PEPSIN [Concomitant]
     Active Substance: DIASTASE\PANCRELIPASE\PEPSIN
     Indication: FLATULENCE
     Route: 048
  3. GAVISCON [Concomitant]
     Active Substance: ALUMINUM HYDROXIDE\MAGNESIUM CARBONATE
     Indication: GASTROOESOPHAGEAL REFLUX DISEASE
     Route: 048
  4. CISAPRIDE [Suspect]
     Active Substance: CISAPRIDE
     Indication: IMPAIRED GASTRIC EMPTYING
     Dosage: AC/HS
     Route: 048
  5. CISAPRIDE [Suspect]
     Active Substance: CISAPRIDE
     Indication: ANAEMIA
     Route: 048
  6. CISAPRIDE [Suspect]
     Active Substance: CISAPRIDE
     Indication: DIARRHOEA
     Route: 048
  7. CISAPRIDE [Suspect]
     Active Substance: CISAPRIDE
     Indication: IMPAIRED GASTRIC EMPTYING
     Route: 048
  8. CISAPRIDE [Suspect]
     Active Substance: CISAPRIDE
     Indication: IMPAIRED GASTRIC EMPTYING
     Dosage: AC/HS
     Route: 048
  9. CISAPRIDE [Suspect]
     Active Substance: CISAPRIDE
     Indication: GASTROOESOPHAGEAL REFLUX DISEASE
     Route: 048
  10. CISAPRIDE [Suspect]
     Active Substance: CISAPRIDE
     Route: 048
  11. CISAPRIDE [Suspect]
     Active Substance: CISAPRIDE
     Route: 048
  12. CISAPRIDE [Suspect]
     Active Substance: CISAPRIDE
     Route: 048
  13. CISAPRIDE [Suspect]
     Active Substance: CISAPRIDE
     Route: 048
  14. CISAPRIDE [Suspect]
     Active Substance: CISAPRIDE
     Indication: ANAEMIA
     Route: 048
  15. CISAPRIDE [Suspect]
     Active Substance: CISAPRIDE
     Indication: IMPAIRED GASTRIC EMPTYING
     Route: 048
  16. CISAPRIDE [Suspect]
     Active Substance: CISAPRIDE
     Route: 048
  17. CISAPRIDE [Suspect]
     Active Substance: CISAPRIDE
     Route: 048
  18. LIPRAM [Concomitant]
     Indication: DIARRHOEA
     Route: 048
  19. CISAPRIDE [Suspect]
     Active Substance: CISAPRIDE
     Indication: FLATULENCE
     Route: 048
  20. CISAPRIDE [Suspect]
     Active Substance: CISAPRIDE
     Indication: ANXIETY
     Route: 048
  21. CISAPRIDE [Suspect]
     Active Substance: CISAPRIDE
     Route: 048
  22. GAVISCON [Concomitant]
     Active Substance: ALUMINUM HYDROXIDE\MAGNESIUM CARBONATE
     Indication: IMPAIRED GASTRIC EMPTYING
     Route: 048
  23. TYLENOL [Concomitant]
     Active Substance: ACETAMINOPHEN
     Indication: ARTHRITIS
     Route: 048
  24. CISAPRIDE [Suspect]
     Active Substance: CISAPRIDE
     Indication: GASTROOESOPHAGEAL REFLUX DISEASE
     Route: 048
  25. MULTI?VITAMIN [Concomitant]
     Active Substance: .ALPHA.-TOCOPHEROL ACETATE, DL-\ASCORBIC ACID\CYANOCOBALAMIN\FLUORIDE ION\FOLIC ACID\NIACIN\PYRIDOXINE\RIBOFLAVIN\THIAMINE\VITAMIN A\VITAMIN D
     Indication: PROPHYLAXIS
     Route: 048
  26. CISAPRIDE [Suspect]
     Active Substance: CISAPRIDE
     Indication: PROPHYLAXIS
     Route: 048
  27. CISAPRIDE [Suspect]
     Active Substance: CISAPRIDE
     Route: 048
  28. CISAPRIDE [Suspect]
     Active Substance: CISAPRIDE
     Route: 048
  29. CISAPRIDE [Suspect]
     Active Substance: CISAPRIDE
     Indication: GASTROOESOPHAGEAL REFLUX DISEASE
     Route: 048
  30. ALPRAZOLAM. [Concomitant]
     Active Substance: ALPRAZOLAM
     Indication: ANXIETY
     Route: 048
  31. CISAPRIDE [Suspect]
     Active Substance: CISAPRIDE
     Indication: ARTHRITIS
     Route: 048
  32. CISAPRIDE [Suspect]
     Active Substance: CISAPRIDE
     Route: 048
  33. CISAPRIDE [Suspect]
     Active Substance: CISAPRIDE
     Route: 048
  34. CISAPRIDE [Suspect]
     Active Substance: CISAPRIDE
     Route: 048

REACTIONS (1)
  - Electrocardiogram QT prolonged [Recovered/Resolved]

NARRATIVE: CASE EVENT DATE: 20080603
